FAERS Safety Report 18675519 (Version 1)
Quarter: 2020Q4

REPORT INFORMATION
  Report Type: Spontaneous
  Country: DE (occurrence: DE)
  Receive Date: 20201229
  Receipt Date: 20201229
  Transmission Date: 20210114
  Serious: Yes (Congenital Anomaly)
  Sender: FDA-Public Use
  Company Number: DE-DRREDDYS-GER/GER/20/0130350

PATIENT
  Age: 1 Day
  Sex: Male
  Weight: 4.03 kg

DRUGS (3)
  1. L-THYROXIN [Concomitant]
     Active Substance: LEVOTHYROXINE SODIUM
     Indication: PRODUCT USED FOR UNKNOWN INDICATION
     Dosage: 50 [MICROGAM D ]
     Route: 064
     Dates: start: 20190811, end: 20200507
  2. LAMOTRIGINE. [Suspect]
     Active Substance: LAMOTRIGINE
     Indication: PRODUCT USED FOR UNKNOWN INDICATION
     Dosage: 450 [MG/D (200-0-250 MG/D) ]/ IN THE BEGINNNING OF PREGNANCY 350 MG/D. DOSAGE INCREASE, UNKNOWN WHEN
     Route: 064
     Dates: start: 20190811, end: 20200507
  3. COPAXONE [Concomitant]
     Active Substance: GLATIRAMER ACETATE
     Indication: PRODUCT USED FOR UNKNOWN INDICATION
     Dosage: 40 [MG/D ]
     Route: 064
     Dates: start: 20190811, end: 20190912

REACTIONS (2)
  - Foetal exposure during pregnancy [Unknown]
  - Hypospadias [Not Recovered/Not Resolved]

NARRATIVE: CASE EVENT DATE: 20200507
